FAERS Safety Report 7124370-9 (Version None)
Quarter: 2010Q4

REPORT INFORMATION
  Report Type: 
  Country: None (occurrence: None)
  Receive Date: 20101126
  Receipt Date: 20101123
  Transmission Date: 20110411
  Serious: Yes (Death, Hospitalization, Other)
  Sender: FDA-Public Use
  Company Number: PHHY2010TR79462

PATIENT
  Age: 45 Year
  Sex: Male

DRUGS (3)
  1. CYCLOSPORINE [Suspect]
     Indication: RENAL TRANSPLANT
  2. PREDNISOLONE [Suspect]
     Indication: RENAL TRANSPLANT
  3. AZATHIOPRINE [Suspect]
     Indication: RENAL TRANSPLANT

REACTIONS (18)
  - ABDOMINAL PAIN LOWER [None]
  - ACINETOBACTER INFECTION [None]
  - BLADDER INJURY [None]
  - BLOOD PRESSURE INCREASED [None]
  - CANDIDIASIS [None]
  - CARDIAC FAILURE [None]
  - GASTROINTESTINAL HAEMORRHAGE [None]
  - HAEMATURIA [None]
  - HEART RATE INCREASED [None]
  - INJURY [None]
  - OPEN FRACTURE [None]
  - PAIN [None]
  - PSEUDOMONAS INFECTION [None]
  - PYREXIA [None]
  - ROAD TRAFFIC ACCIDENT [None]
  - SEPSIS [None]
  - SURGERY [None]
  - THROMBOCYTOPENIA [None]
